FAERS Safety Report 5465129-8 (Version None)
Quarter: 2007Q3

REPORT INFORMATION
  Report Type: 
  Country: None (occurrence: None)
  Receive Date: 20070820
  Receipt Date: 20070425
  Transmission Date: 20080115
  Serious: No
  Sender: FDA-Public Use
  Company Number: WAES 0704USA05622

PATIENT
  Age: 61 Year
  Sex: Male

DRUGS (3)
  1. JANUVIA [Suspect]
     Indication: TYPE 2 DIABETES MELLITUS
     Dosage: 100 MG/DAILY/PO
     Route: 048
     Dates: start: 20070324
  2. AVANDAMET [Concomitant]
  3. ZETIA [Concomitant]

REACTIONS (5)
  - ATELECTASIS [None]
  - BACTERIAL INFECTION [None]
  - BRONCHITIS [None]
  - COUGH [None]
  - NASOPHARYNGITIS [None]
